FAERS Safety Report 7964495-9 (Version None)
Quarter: 2011Q4

REPORT INFORMATION
  Report Type: 
  Country: None (occurrence: None)
  Receive Date: 20111208
  Receipt Date: 20111207
  Transmission Date: 20120403
  Serious: Yes (Hospitalization)
  Sender: FDA-Public Use
  Company Number: IT-SANOFI-AVENTIS-2011SA080238

PATIENT
  Age: 68 Year
  Sex: Female

DRUGS (5)
  1. MUTABON [Suspect]
     Route: 048
     Dates: start: 20090421, end: 20111022
  2. SERTRALINE HYDROCHLORIDE [Suspect]
     Route: 048
     Dates: start: 20090421, end: 20111022
  3. ZOLPIDEM [Suspect]
     Route: 048
     Dates: start: 20090421, end: 20111022
  4. CANDESARTAN CILEXETIL AND HYDROCHLOROTHIAZIDE [Suspect]
     Route: 048
     Dates: start: 20050201, end: 20111022
  5. TRAMADOL HCL [Suspect]
     Route: 048
     Dates: start: 20090728, end: 20111022

REACTIONS (3)
  - URINARY TRACT INFECTION [None]
  - ABDOMINAL PAIN [None]
  - PYREXIA [None]
